FAERS Safety Report 9098502 (Version 1)
Quarter: 2013Q1

REPORT INFORMATION
  Report Type: Spontaneous
  Country: US (occurrence: US)
  Receive Date: 20130213
  Receipt Date: 20130213
  Transmission Date: 20140127
  Serious: Yes (Other)
  Sender: FDA-Public Use
  Company Number: US-PFIZER INC-2013056927

PATIENT
  Age: 80 Year
  Sex: Female
  Weight: 50.34 kg

DRUGS (4)
  1. CADUET [Suspect]
     Indication: HYPERTENSION
     Dosage: 5 MG/40 MG, 1X/DAY
     Route: 048
  2. ATENOLOL [Concomitant]
     Dosage: 25 MG, UNK
  3. LISINOPRIL W/HYDROCHLOROTHIAZIDE [Concomitant]
     Dosage: 10 MG/6.25 MG (20 MG/12.5 MG OF HALF), UNK
  4. FISH OIL [Concomitant]
     Dosage: UNK

REACTIONS (3)
  - Upper limb fracture [Recovering/Resolving]
  - Fall [Recovering/Resolving]
  - Pain [Recovered/Resolved]
